FAERS Safety Report 24985145 (Version 1)
Quarter: 2025Q1

REPORT INFORMATION
  Report Type: Spontaneous
  Country: US (occurrence: US)
  Receive Date: 20250219
  Receipt Date: 20250219
  Transmission Date: 20250409
  Serious: Yes (Other)
  Sender: AMGEN
  Company Number: US-AMGEN-USASP2025029375

PATIENT
  Age: 92 Year
  Sex: Female

DRUGS (1)
  1. PROLIA [Suspect]
     Active Substance: DENOSUMAB
     Indication: Bone density abnormal
     Route: 065

REACTIONS (5)
  - Hallucination [Unknown]
  - Tooth loss [Unknown]
  - Mobility decreased [Unknown]
  - Cognitive disorder [Unknown]
  - Osteoarthritis [Unknown]
